FAERS Safety Report 11140038 (Version 1)
Quarter: 2015Q2

REPORT INFORMATION
  Report Type: Spontaneous
  Country: US (occurrence: US)
  Receive Date: 20150527
  Receipt Date: 20150527
  Transmission Date: 20150821
  Serious: Yes (Hospitalization)
  Sender: FDA-Public Use
  Company Number: US-BAYER-2015-276086

PATIENT
  Age: 28 Year
  Sex: Female

DRUGS (1)
  1. DIHYDROXYACETONE [Suspect]
     Active Substance: DIHYDROXYACETONE

REACTIONS (2)
  - Methaemoglobinaemia [Recovered/Resolved]
  - Respiratory distress [Recovered/Resolved]
